FAERS Safety Report 6251700-2 (Version None)
Quarter: 2009Q2

REPORT INFORMATION
  Report Type: 
  Country: None (occurrence: None)
  Receive Date: 20090630
  Receipt Date: 20090618
  Transmission Date: 20091009
  Serious: Yes (Other)
  Sender: FDA-Public Use
  Company Number: GB-ELI_LILLY_AND_COMPANY-GB200906004223

PATIENT
  Age: 64 Year
  Sex: Male
  Weight: 132 kg

DRUGS (9)
  1. BYETTA [Suspect]
     Indication: DIABETES MELLITUS
     Dosage: 5 UG, 2/D
     Route: 058
     Dates: start: 20090510, end: 20090513
  2. ASPIRIN [Concomitant]
     Dosage: 75 MG, UNK
  3. ATENOLOL [Concomitant]
     Dosage: 50 MG, UNK
  4. ATORVASTATIN CALCIUM [Concomitant]
     Dosage: 10 MG, UNK
  5. BENDROFLUAZIDE [Concomitant]
     Indication: DIABETES MELLITUS
     Dosage: 2.5 MG, UNK
  6. GLICLAZIDE [Concomitant]
     Indication: DIABETES MELLITUS
     Dosage: 160 MG, 2/D
  7. INSULATARD [Concomitant]
     Indication: DIABETES MELLITUS
     Dosage: 40 IU, DAILY (1/D)
     Route: 058
  8. METFORMIN HCL [Concomitant]
     Indication: DIABETES MELLITUS
     Dosage: 500 MG, DAILY (1/D)
  9. OMEPRAZOLE [Concomitant]
     Dosage: 20 MG, UNK

REACTIONS (5)
  - CARDIAC FLUTTER [None]
  - FLUSHING [None]
  - MALAISE [None]
  - PALPITATIONS [None]
  - PARAESTHESIA [None]
